FAERS Safety Report 19372375 (Version 4)
Quarter: 2021Q3

REPORT INFORMATION
  Report Type: Spontaneous
  Country: FR (occurrence: FR)
  Receive Date: 20210604
  Receipt Date: 20210716
  Transmission Date: 20211014
  Serious: Yes (Other)
  Sender: FDA-Public Use
  Company Number: NVSC2021FR122549

PATIENT
  Age: 65 Year

DRUGS (1)
  1. LUTATHERA [Suspect]
     Active Substance: LUTETIUM OXODOTREOTIDE LU-177
     Indication: PRODUCT USED FOR UNKNOWN INDICATION
     Dosage: UNK
     Route: 065
     Dates: start: 20200127, end: 20200803

REACTIONS (4)
  - Malignant peritoneal neoplasm [Unknown]
  - Malignant neoplasm progression [Unknown]
  - Neuroendocrine tumour [Unknown]
  - Obstruction [Unknown]

NARRATIVE: CASE EVENT DATE: 201806
